FAERS Safety Report 6525283-3 (Version None)
Quarter: 2010Q1

REPORT INFORMATION
  Report Type: 
  Country: None (occurrence: None)
  Receive Date: 20100104
  Receipt Date: 20091221
  Transmission Date: 20100710
  Serious: Yes (Hospitalization)
  Sender: FDA-Public Use
  Company Number: KR-PFIZER INC-2007008167

PATIENT
  Age: 75 Year
  Sex: Male
  Weight: 46.5 kg

DRUGS (2)
  1. SUNITINIB MALATE [Suspect]
     Indication: GASTROINTESTINAL STROMAL TUMOUR
     Route: 048
     Dates: start: 20070103
  2. MAGNESIUM OXIDE [Concomitant]
     Route: 048
     Dates: start: 20040116

REACTIONS (3)
  - ASTHENIA [None]
  - AZOTAEMIA [None]
  - DISSEMINATED INTRAVASCULAR COAGULATION [None]
